FAERS Safety Report 16431283 (Version 1)
Quarter: 2019Q2

REPORT INFORMATION
  Report Type: Spontaneous
  Country: LB (occurrence: LB)
  Receive Date: 20190614
  Receipt Date: 20190614
  Transmission Date: 20190711
  Serious: Yes (Hospitalization, Other)
  Sender: FDA-Public Use
  Company Number: LB-BAYER-2019-108726

PATIENT
  Age: 38 Year
  Sex: Male

DRUGS (6)
  1. VIDAZA [Suspect]
     Active Substance: AZACITIDINE
  2. NOREPINEPHRINE. [Concomitant]
     Active Substance: NOREPINEPHRINE
  3. FUROSEMIDE. [Concomitant]
     Active Substance: FUROSEMIDE
     Dosage: UNK
  4. IVABRADINE [Concomitant]
     Active Substance: IVABRADINE
  5. LEVOSIMENDAN [Concomitant]
     Active Substance: LEVOSIMENDAN
  6. SORAFENIB (RAF KINASE INHIBITOR) [Suspect]
     Active Substance: SORAFENIB
     Indication: ACUTE MYELOID LEUKAEMIA

REACTIONS (8)
  - Pancytopenia [None]
  - Off label use [None]
  - Tachycardia [None]
  - Cardiac failure acute [None]
  - Cardiogenic shock [None]
  - Thrombocytopenia [None]
  - Lung infection [None]
  - Product use in unapproved indication [None]
